FAERS Safety Report 11168226 (Version 1)
Quarter: 2015Q2

REPORT INFORMATION
  Report Type: Spontaneous
  Country: US (occurrence: None)
  Receive Date: 20150604
  Receipt Date: 20150604
  Transmission Date: 20150821
  Serious: Yes (Death, Hospitalization)
  Sender: FDA-Public Use
  Company Number: None

PATIENT
  Age: 52 Year
  Sex: Female
  Weight: 111.13 kg

DRUGS (1)
  1. GLEEVEC [Suspect]
     Active Substance: IMATINIB MESYLATE
     Indication: CHRONIC MYELOID LEUKAEMIA
     Route: 048
     Dates: start: 20031210, end: 20150423

REACTIONS (11)
  - Nausea [None]
  - Periorbital oedema [None]
  - Oral pain [None]
  - Diarrhoea [None]
  - Rash [None]
  - Fluid retention [None]
  - Bone density decreased [None]
  - Vomiting [None]
  - Muscle spasms [None]
  - Drug intolerance [None]
  - Myocardial infarction [None]

NARRATIVE: CASE EVENT DATE: 20150423
